FAERS Safety Report 9925147 (Version 1)
Quarter: 2014Q1

REPORT INFORMATION
  Report Type: Spontaneous
  Country: US (occurrence: None)
  Receive Date: 20140225
  Receipt Date: 20140225
  Transmission Date: 20141002
  Serious: Yes (Hospitalization)
  Sender: FDA-Public Use
  Company Number: None

PATIENT
  Age: 59 Year
  Sex: Female
  Weight: 86.18 kg

DRUGS (1)
  1. DOXYCYCLINE [Suspect]
     Indication: ACNE
     Dosage: 1 PILL TWICE DAILY
     Route: 048
     Dates: start: 20131030, end: 20140207

REACTIONS (8)
  - Lupus-like syndrome [None]
  - Musculoskeletal stiffness [None]
  - Arthralgia [None]
  - Movement disorder [None]
  - Gait disturbance [None]
  - Nausea [None]
  - Headache [None]
  - Confusional state [None]
